FAERS Safety Report 7116777-0 (Version None)
Quarter: 2010Q4

REPORT INFORMATION
  Report Type: 
  Country: None (occurrence: None)
  Receive Date: 20101115
  Receipt Date: 20101104
  Transmission Date: 20110411
  Serious: Yes (Hospitalization, Other)
  Sender: FDA-Public Use
  Company Number: 2010100002

PATIENT
  Age: 67 Year
  Sex: Male
  Weight: 122.4712 kg

DRUGS (10)
  1. ONSOLIS [Suspect]
     Indication: CANCER PAIN
     Dosage: TITRATE UP TO 4-200 MCG/DOSE (UP TO 4 TIMES DAILY, BU
     Route: 002
     Dates: start: 20100618
  2. DILAUDID [Concomitant]
  3. HYDROMORPHONE HCL [Concomitant]
  4. METHADONE [Concomitant]
  5. ASPIRIN [Concomitant]
  6. LIPITOR [Concomitant]
  7. LORAZEPAM [Concomitant]
  8. CITALOPRAM HYDROBROMIDE [Concomitant]
  9. NEXIUM [Concomitant]
  10. MULTI-VITAMINS [Concomitant]

REACTIONS (6)
  - ABDOMINAL PAIN [None]
  - COLONIC OBSTRUCTION [None]
  - NAUSEA [None]
  - SCAR [None]
  - VOMITING [None]
  - WHITE BLOOD CELL COUNT INCREASED [None]
